FAERS Safety Report 10280110 (Version 1)
Quarter: 2014Q3

REPORT INFORMATION
  Report Type: Spontaneous
  Country: US (occurrence: None)
  Receive Date: 20140701
  Receipt Date: 20140701
  Transmission Date: 20150326
  Serious: No
  Sender: FDA-Public Use
  Company Number: None

PATIENT
  Age: 18 Year
  Sex: Male
  Weight: 49.9 kg

DRUGS (1)
  1. ZYPREXA [Suspect]
     Active Substance: OLANZAPINE
     Indication: INSOMNIA
     Dosage: 1  ONCE DAILY  TAKEN BY MOUTH
     Route: 048
     Dates: start: 20131225, end: 20140225

REACTIONS (3)
  - Flatulence [None]
  - Hepatic steatosis [None]
  - Weight increased [None]

NARRATIVE: CASE EVENT DATE: 20140220
